FAERS Safety Report 22155244 (Version 1)
Quarter: 2023Q1

REPORT INFORMATION
  Report Type: Spontaneous
  Country: US (occurrence: None)
  Receive Date: 20230329
  Receipt Date: 20230329
  Transmission Date: 20230418
  Serious: Yes (Disabling)
  Sender: FDA-Public Use
  Company Number: None

PATIENT
  Age: 90 Year
  Sex: Female
  Weight: 100.8 kg

DRUGS (4)
  1. PROLIA [Suspect]
     Active Substance: DENOSUMAB
     Indication: Osteoporosis
     Dosage: OTHER QUANTITY : 1 INJECTION(S);?OTHER FREQUENCY : EVERY 6 MONTHS;?
     Route: 058
     Dates: start: 20221212, end: 20221212
  2. AMLODIPINE [Concomitant]
     Active Substance: AMLODIPINE BESYLATE
  3. FERROUS SULFATE [Concomitant]
     Active Substance: FERROUS SULFATE
  4. VITAMIN D3 [Concomitant]
     Active Substance: CHOLECALCIFEROL

REACTIONS (5)
  - Dementia [None]
  - Abnormal behaviour [None]
  - Depressed mood [None]
  - Anxiety [None]
  - Patient elopement [None]

NARRATIVE: CASE EVENT DATE: 20221212
